FAERS Safety Report 24185724 (Version 4)
Quarter: 2024Q4

REPORT INFORMATION
  Report Type: Report from Study
  Country: AU (occurrence: AU)
  Receive Date: 20240807
  Receipt Date: 20241225
  Transmission Date: 20250115
  Serious: Yes (Disabling, Other)
  Sender: SAMSUNG BIOEPIS
  Company Number: AU-SAMSUNG BIOEPIS-SB-2024-17339

PATIENT
  Age: 77 Year
  Sex: Male

DRUGS (1)
  1. HADLIMA [Suspect]
     Active Substance: ADALIMUMAB-BWWD
     Indication: Hidradenitis
     Dosage: 40 MG/0.8ML;

REACTIONS (14)
  - Neoplasm [Recovering/Resolving]
  - Peripheral swelling [Not Recovered/Not Resolved]
  - Lower respiratory tract infection [Not Recovered/Not Resolved]
  - Herpes zoster [Not Recovered/Not Resolved]
  - Groin pain [Recovering/Resolving]
  - Hypoaesthesia [Recovering/Resolving]
  - Postoperative wound infection [Recovering/Resolving]
  - Acne [Recovering/Resolving]
  - Blood glucose increased [Not Recovered/Not Resolved]
  - Blood iron increased [Not Recovered/Not Resolved]
  - Malaise [Not Recovered/Not Resolved]
  - Eye infection [Not Recovered/Not Resolved]
  - Furuncle [Not Recovered/Not Resolved]
  - Off label use [Unknown]
